FAERS Safety Report 7415791-5 (Version None)
Quarter: 2011Q2

REPORT INFORMATION
  Report Type: 
  Country: None (occurrence: None)
  Receive Date: 20110406
  Receipt Date: 20110323
  Transmission Date: 20111010
  Serious: Yes (Disabling)
  Sender: FDA-Public Use
  Company Number: 2011MA003006

PATIENT
  Age: 46 Year
  Sex: Female

DRUGS (17)
  1. SYMBICORT [Concomitant]
  2. MOMETASONE [Concomitant]
  3. GLANDOSANE [Concomitant]
  4. INFUMORPH [Concomitant]
  5. VENLAFAXINE HYDROCHLORIDE [Suspect]
     Indication: DEPRESSION
     Dosage: 225 MG;PO
     Route: 048
     Dates: start: 20090901, end: 20110301
  6. ALBUTEROL SULFATE AUTOHALER [Concomitant]
  7. DOCUSATE [Concomitant]
  8. MIRTAZAPINE [Concomitant]
  9. MACROGOL [Concomitant]
  10. HYPROMELLOSE [Concomitant]
  11. CODEINE [Concomitant]
  12. PREGABALIN [Concomitant]
  13. SOLIFENACIN [Concomitant]
  14. CYCLIZINE [Concomitant]
  15. LANSOPRAZOLE [Concomitant]
  16. NITROFURANTOIN [Concomitant]
  17. XYLOMETAZOLINE [Concomitant]

REACTIONS (2)
  - DRUG INEFFECTIVE [None]
  - MEDICATION RESIDUE [None]
